FAERS Safety Report 18152443 (Version 1)
Quarter: 2020Q3

REPORT INFORMATION
  Report Type: Spontaneous
  Country: US (occurrence: US)
  Receive Date: 20200814
  Receipt Date: 20200814
  Transmission Date: 20201103
  Serious: Yes (Death, Life-Threatening, Hospitalization, Other)
  Sender: FDA-Public Use
  Company Number: US-TEVA-2020-US-1814098

PATIENT
  Age: 54 Year
  Sex: Male
  Weight: 86 kg

DRUGS (32)
  1. TOCILIZUMAB. [Concomitant]
     Active Substance: TOCILIZUMAB
     Dates: start: 20200620
  2. NOREPINEPHRINE. [Concomitant]
     Active Substance: NOREPINEPHRINE
  3. ASCORBIC [Concomitant]
  4. REMDESIVIR. [Suspect]
     Active Substance: REMDESIVIR
     Dosage: 200 MILLIGRAM DAILY;
     Route: 042
     Dates: start: 20200621, end: 20200624
  5. PLASMA [Concomitant]
     Active Substance: HUMAN PLASMA
     Route: 065
  6. SODIUM BICARBONATE. [Concomitant]
     Active Substance: SODIUM BICARBONATE
  7. ACETAMINOPHEN. [Concomitant]
     Active Substance: ACETAMINOPHEN
  8. METOPROLOL. [Concomitant]
     Active Substance: METOPROLOL
  9. PROPOFOL. [Concomitant]
     Active Substance: PROPOFOL
     Route: 065
  10. VASOPRESSIN. [Concomitant]
     Active Substance: VASOPRESSIN
  11. CHLORHEXIDINE [Concomitant]
     Active Substance: CHLORHEXIDINE
  12. ETOMIDATE. [Concomitant]
     Active Substance: ETOMIDATE
  13. HEPARIN [Concomitant]
     Active Substance: HEPARIN SODIUM
  14. REMDESIVIR. [Suspect]
     Active Substance: REMDESIVIR
     Indication: COVID-19
     Dosage: 200 MILLIGRAM DAILY;
     Route: 042
     Dates: start: 20200620, end: 20200620
  15. SOLU?MEDROL [Concomitant]
     Active Substance: METHYLPREDNISOLONE SODIUM SUCCINATE
  16. ROCURONIUM [Concomitant]
     Active Substance: ROCURONIUM BROMIDE
  17. KAYEXALATE [Concomitant]
     Active Substance: SODIUM POLYSTYRENE SULFONATE
  18. IVERMECTIN. [Concomitant]
     Active Substance: IVERMECTIN
     Dates: start: 20200614
  19. CALCIUM GLUCONATE. [Concomitant]
     Active Substance: CALCIUM GLUCONATE
     Route: 065
  20. EPINEPHRINE. [Concomitant]
     Active Substance: EPINEPHRINE
  21. FAMOTIDINE. [Concomitant]
     Active Substance: FAMOTIDINE
  22. PHENYLEPHRINE [Concomitant]
     Active Substance: PHENYLEPHRINE HYDROCHLORIDE
  23. ENOXAPARIN [Concomitant]
     Active Substance: ENOXAPARIN
  24. ONDANSETRON [Concomitant]
     Active Substance: ONDANSETRON
  25. CLINIMIX E [Concomitant]
     Active Substance: ALANINE\AMINO ACIDS\ARGININE\CALCIUM CHLORIDE\DEXTROSE\GLYCINE\HISTIDINE\ISOLEUCINE\LEUCINE\LYSINE\MAGNESIUM CHLORIDE\METHIONINE\PHENYLALANINE\POTASSIUM PHOSPHATE, DIBASIC\PROLINE\PROLINE, DL-\SERINE\SODIUM ACETATE\SODIUM CHLORIDE\THREONINE\TRYPTOPHAN\TYROSINE\VALINE
  26. PETROLATUM/MINERAL OIL [Concomitant]
  27. AMIODARONE HCL [Suspect]
     Active Substance: AMIODARONE HYDROCHLORIDE
     Indication: PRODUCT USED FOR UNKNOWN INDICATION
     Dosage: FREQUENCY: Q1 MINUTE
     Route: 042
  28. AMIODARONE HCL [Suspect]
     Active Substance: AMIODARONE HYDROCHLORIDE
     Dosage: FREQUENCY: Q1 MINUTE
     Route: 042
     Dates: start: 20200629
  29. CEFTRIAXONE. [Concomitant]
     Active Substance: CEFTRIAXONE
  30. ALBUTEROL HFA [Concomitant]
     Active Substance: ALBUTEROL SULFATE
  31. CHOLECALCIFEROL [Concomitant]
     Active Substance: CHOLECALCIFEROL
  32. ZINC SULFATE. [Concomitant]
     Active Substance: ZINC SULFATE

REACTIONS (10)
  - Electrocardiogram QRS complex prolonged [Unknown]
  - Respiratory disorder [Fatal]
  - Liver disorder [Not Recovered/Not Resolved]
  - Cardiac arrest [Fatal]
  - Hypotension [Unknown]
  - Bradycardia [Fatal]
  - Renal tubular necrosis [Unknown]
  - Acute kidney injury [Fatal]
  - Pulseless electrical activity [Fatal]
  - Hepatic enzyme increased [Fatal]

NARRATIVE: CASE EVENT DATE: 20200628
